FAERS Safety Report 7228296-1 (Version None)
Quarter: 2011Q1

REPORT INFORMATION
  Report Type: 
  Country: None (occurrence: None)
  Receive Date: 20110114
  Receipt Date: 20101116
  Transmission Date: 20110831
  Serious: Yes (Other)
  Sender: FDA-Public Use
  Company Number: US-TEVA-263118USA

PATIENT
  Age: 10 Year
  Sex: Male

DRUGS (1)
  1. ALBUTEROL SULFATE AUTOHALER [Suspect]
     Indication: ASTHMA
     Route: 055

REACTIONS (3)
  - DRUG INEFFECTIVE [None]
  - CYANOSIS [None]
  - DYSPNOEA [None]
